FAERS Safety Report 25122561 (Version 3)
Quarter: 2025Q2

REPORT INFORMATION
  Report Type: Report from Study
  Country: DE (occurrence: DE)
  Receive Date: 20250326
  Receipt Date: 20250404
  Transmission Date: 20250717
  Serious: Yes (Hospitalization)
  Sender: ABBVIE
  Company Number: DE-ABBVIE-6182734

PATIENT
  Age: 74 Year
  Sex: Male
  Weight: 74.1 kg

DRUGS (19)
  1. FOSCARBIDOPA\FOSLEVODOPA [Suspect]
     Active Substance: FOSCARBIDOPA\FOSLEVODOPA
     Indication: Parkinson^s disease
     Route: 058
     Dates: start: 20250307
  2. RIVOTRIL [Concomitant]
     Active Substance: CLONAZEPAM
     Indication: Rapid eye movement sleep behaviour disorder
     Dosage: 0.5MG
     Route: 048
     Dates: start: 2022
  3. PANTOZOL [Concomitant]
     Active Substance: PANTOPRAZOLE SODIUM
     Indication: Gastrointestinal disorder prophylaxis
     Route: 048
     Dates: start: 2006
  4. TROSPIUM CHLORIDE [Concomitant]
     Active Substance: TROSPIUM CHLORIDE
     Indication: Bladder catheterisation
     Route: 048
     Dates: start: 2010, end: 20250317
  5. CLOZAPINE [Concomitant]
     Active Substance: CLOZAPINE
     Indication: Hallucination
     Route: 048
     Dates: start: 2019
  6. DULOXETINE [Concomitant]
     Active Substance: DULOXETINE
     Indication: Depression
     Dosage: 30 MG
     Route: 048
     Dates: start: 2019
  7. RAMIPRIL [Concomitant]
     Active Substance: RAMIPRIL
     Indication: Hypertension
     Route: 048
     Dates: start: 2020
  8. Carmen [Concomitant]
     Indication: Hypertension
     Dosage: 10MG
     Route: 048
     Dates: start: 2024
  9. ASPIRIN [Concomitant]
     Active Substance: ASPIRIN
     Indication: Coronary artery disease
     Route: 048
     Dates: start: 2015
  10. SIMVASTATIN [Concomitant]
     Active Substance: SIMVASTATIN
     Indication: Hypercholesterolaemia
     Route: 048
     Dates: start: 2018
  11. PRUCALOPRIDE SUCCINATE [Concomitant]
     Active Substance: PRUCALOPRIDE SUCCINATE
     Indication: Constipation
     Route: 048
     Dates: start: 2024
  12. Macrogol Bag [Concomitant]
     Indication: Constipation
     Dosage: 13,8G
     Route: 048
     Dates: start: 2024
  13. PALIPERIDONE PALMITATE [Concomitant]
     Active Substance: PALIPERIDONE PALMITATE
     Indication: Schizophrenia
     Dosage: TREVISCTA 525
     Route: 058
     Dates: start: 2012
  14. SULFAMETHOXAZOLE\TRIMETHOPRIM [Concomitant]
     Active Substance: SULFAMETHOXAZOLE\TRIMETHOPRIM
     Indication: Urinary tract infection
     Dosage: 800/160MG
     Route: 048
     Dates: start: 20250307, end: 20250310
  15. SINEMET [Concomitant]
     Active Substance: CARBIDOPA\LEVODOPA
     Indication: Parkinson^s disease
     Route: 048
     Dates: start: 2019, end: 20250307
  16. OPICAPONE [Concomitant]
     Active Substance: OPICAPONE
     Indication: Parkinson^s disease
     Route: 048
     Dates: start: 2019
  17. SAFINAMIDE [Concomitant]
     Active Substance: SAFINAMIDE
     Indication: Parkinson^s disease
     Route: 048
     Dates: start: 2018
  18. BENSERAZIDE HYDROCHLORIDE\LEVODOPA [Concomitant]
     Active Substance: BENSERAZIDE HYDROCHLORIDE\LEVODOPA
     Indication: Parkinson^s disease
     Dosage: MADOPAR RAPID TABLET
     Route: 048
     Dates: start: 2012, end: 20250307
  19. BENSERAZIDE HYDROCHLORIDE\LEVODOPA [Concomitant]
     Active Substance: BENSERAZIDE HYDROCHLORIDE\LEVODOPA
     Indication: Parkinson^s disease
     Dosage: MADOPAR RAPID TABLET
     Route: 048
     Dates: start: 2012, end: 20250307

REACTIONS (3)
  - Faecaloma [Recovered/Resolved with Sequelae]
  - Faecaloma [Recovered/Resolved]
  - Pneumonia [Recovered/Resolved with Sequelae]

NARRATIVE: CASE EVENT DATE: 20250310
